FAERS Safety Report 11777531 (Version 3)
Quarter: 2019Q4

REPORT INFORMATION
  Report Type: Report from Study
  Country: CO (occurrence: CO)
  Receive Date: 20151125
  Receipt Date: 20191218
  Transmission Date: 20200122
  Serious: Yes (Hospitalization, Other)
  Sender: FDA-Public Use
  Company Number: CO-VIFOR (INTERNATIONAL) INC.-VIT-2015-03225

PATIENT
  Sex: Female

DRUGS (2)
  1. MIRCERA [Suspect]
     Active Substance: METHOXY POLYETHYLENE GLYCOL-EPOETIN BETA
     Route: 058
     Dates: start: 20140904
  2. MIRCERA [Suspect]
     Active Substance: METHOXY POLYETHYLENE GLYCOL-EPOETIN BETA
     Indication: NEPHROGENIC ANAEMIA
     Route: 058
     Dates: start: 20140904

REACTIONS (7)
  - Urinary nitrogen increased [Unknown]
  - Renal injury [Unknown]
  - Urea urine increased [Unknown]
  - Urinary tract infection [Recovered/Resolved]
  - Azotaemia [Recovering/Resolving]
  - Blood creatinine increased [Unknown]
  - Haemoglobin decreased [Recovered/Resolved]
